FAERS Safety Report 6122448-X (Version None)
Quarter: 2009Q1

REPORT INFORMATION
  Report Type: 
  Country: None (occurrence: None)
  Receive Date: 20090318
  Receipt Date: 20090116
  Transmission Date: 20090719
  Serious: No
  Sender: FDA-Public Use
  Company Number: US-ASTRAZENECA-2008UW27128

PATIENT
  Age: 73 Year
  Sex: Male

DRUGS (8)
  1. SYMBICORT [Suspect]
     Indication: ASTHMA
     Dosage: 160/4.5 MCG, TWO PUFFS TWICE DAILY
     Route: 055
  2. SYMBICORT [Suspect]
     Dosage: 160/4.5 MCG, TWO PUFFS TWICE DAILY
     Route: 055
     Dates: start: 20081128
  3. NASACORT [Concomitant]
  4. AVOPRO [Concomitant]
  5. LIPITOR [Concomitant]
  6. SINGULAIR [Concomitant]
  7. ALLERGY SHOTS [Concomitant]
     Indication: HYPERSENSITIVITY
  8. PROAIR HFA [Concomitant]
     Route: 055

REACTIONS (3)
  - DRUG INEFFECTIVE [None]
  - DYSPNOEA [None]
  - WHEEZING [None]
